FAERS Safety Report 9382975 (Version 3)
Quarter: 2013Q3

REPORT INFORMATION
  Report Type: Spontaneous
  Country: US (occurrence: US)
  Receive Date: 20130703
  Receipt Date: 20130724
  Transmission Date: 20140515
  Serious: Yes (Other)
  Sender: FDA-Public Use
  Company Number: US-PFIZER INC-2013193342

PATIENT
  Age: 13 Year
  Sex: Male

DRUGS (1)
  1. BENEFIX [Suspect]
     Indication: FACTOR IX DEFICIENCY
     Dosage: 7000 IU, MONTHLY

REACTIONS (4)
  - Contusion [Unknown]
  - Fall [Unknown]
  - Scratch [Unknown]
  - Excoriation [Unknown]
